FAERS Safety Report 6040067-0 (Version None)
Quarter: 2009Q1

REPORT INFORMATION
  Report Type: 
  Country: None (occurrence: None)
  Receive Date: 20090116
  Receipt Date: 20071203
  Transmission Date: 20090719
  Serious: No
  Sender: FDA-Public Use
  Company Number: US-BRISTOL-MYERS SQUIBB COMPANY-14002208

PATIENT
  Age: 25 Year
  Sex: Male
  Weight: 86 kg

DRUGS (3)
  1. ABILIFY [Suspect]
     Indication: BIPOLAR DISORDER
     Dosage: HAD BEEN TAKING THE DRUG FOR LAST 4-5 MONTHS,PREVIOUS DOSE 15MG PO DAILY.
     Route: 048
  2. PRILOSEC [Concomitant]
  3. WELLBUTRIN [Concomitant]

REACTIONS (1)
  - BLOOD GLUCOSE INCREASED [None]
